FAERS Safety Report 12627574 (Version 2)
Quarter: 2017Q1

REPORT INFORMATION
  Report Type: Spontaneous
  Country: US (occurrence: US)
  Receive Date: 20160805
  Receipt Date: 20170209
  Transmission Date: 20170428
  Serious: Yes (Hospitalization)
  Sender: FDA-Public Use
  Company Number: US-LUNDBECK-DKLU2017159

PATIENT
  Age: 6 Year
  Sex: Female

DRUGS (5)
  1. DEPAKOTE [Suspect]
     Active Substance: DIVALPROEX SODIUM
     Indication: PRODUCT USED FOR UNKNOWN INDICATION
     Route: 065
  2. BANZEL [Concomitant]
     Active Substance: RUFINAMIDE
     Indication: PRODUCT USED FOR UNKNOWN INDICATION
     Route: 065
  3. ONFI [Suspect]
     Active Substance: CLOBAZAM
     Indication: COMPLEX PARTIAL SEIZURES
     Route: 065
  4. ONFI [Suspect]
     Active Substance: CLOBAZAM
     Indication: ALTERED STATE OF CONSCIOUSNESS
     Route: 065
  5. ONFI [Suspect]
     Active Substance: CLOBAZAM
     Indication: LENNOX-GASTAUT SYNDROME
     Route: 065

REACTIONS (10)
  - Infection [Unknown]
  - Weight decreased [Unknown]
  - Hypotonia [Unknown]
  - Ataxia [Unknown]
  - Seizure [Unknown]
  - Electroencephalogram abnormal [Unknown]
  - Parainfluenzae virus infection [Unknown]
  - Somnolence [Unknown]
  - Pneumonia [Unknown]
  - Gait disturbance [Unknown]

NARRATIVE: CASE EVENT DATE: 201510
